FAERS Safety Report 8969995 (Version 2)
Quarter: 2013Q1

REPORT INFORMATION
  Report Type: Spontaneous
  Country: US (occurrence: US)
  Receive Date: 20121217
  Receipt Date: 20130110
  Transmission Date: 20140127
  Serious: No
  Sender: FDA-Public Use
  Company Number: US-PFIZER INC-2012313363

PATIENT
  Sex: 0

DRUGS (1)
  1. PREMARIN [Suspect]
     Dosage: UNK

REACTIONS (1)
  - Hormone level abnormal [Unknown]
